FAERS Safety Report 7935655-8 (Version None)
Quarter: 2011Q4

REPORT INFORMATION
  Report Type: 
  Country: None (occurrence: None)
  Receive Date: 20111123
  Receipt Date: 20111114
  Transmission Date: 20120403
  Serious: Yes (Hospitalization, Disabling)
  Sender: FDA-Public Use
  Company Number: US-ELI_LILLY_AND_COMPANY-US201007007173

PATIENT
  Sex: Male

DRUGS (3)
  1. HUMULIN 70/30 [Suspect]
     Dosage: 40 U, 2/D
  2. HUMULIN 70/30 [Suspect]
     Indication: TYPE 2 DIABETES MELLITUS
     Dosage: 40 U, 2/D
  3. HUMULIN 50/50 [Suspect]
     Indication: TYPE 2 DIABETES MELLITUS

REACTIONS (11)
  - DYSGRAPHIA [None]
  - VISUAL ACUITY REDUCED [None]
  - EYE DISORDER [None]
  - BLOOD GLUCOSE INCREASED [None]
  - HYPOACUSIS [None]
  - INAPPROPRIATE SCHEDULE OF DRUG ADMINISTRATION [None]
  - WALKING DISABILITY [None]
  - SPEECH DISORDER [None]
  - MEMORY IMPAIRMENT [None]
  - CEREBROVASCULAR ACCIDENT [None]
  - DYSSTASIA [None]
